FAERS Safety Report 15574967 (Version 1)
Quarter: 2018Q4

REPORT INFORMATION
  Report Type: Report from Study
  Country: KR (occurrence: KR)
  Receive Date: 20181101
  Receipt Date: 20181101
  Transmission Date: 20190205
  Serious: Yes (Hospitalization)
  Sender: FDA-Public Use
  Company Number: KR-AMGEN-KORNI2018153768

PATIENT
  Age: 38 Year
  Sex: Female

DRUGS (13)
  1. DOXORUBICIN                        /00330902/ [Concomitant]
     Active Substance: DOXORUBICIN
     Dosage: 78 MG
     Route: 065
     Dates: start: 20180827, end: 20180827
  2. CYCLOPHOSPHAMIDE. [Concomitant]
     Active Substance: CYCLOPHOSPHAMIDE
     Indication: BREAST CANCER
     Dosage: 918 MG
     Route: 065
     Dates: start: 20180625, end: 20180625
  3. DOXORUBICIN                        /00330902/ [Concomitant]
     Active Substance: DOXORUBICIN
     Indication: BREAST CANCER
     Dosage: 91 MG
     Dates: start: 20180625, end: 20180625
  4. CYCLOPHOSPHAMIDE. [Concomitant]
     Active Substance: CYCLOPHOSPHAMIDE
     Dosage: 918 MG
     Route: 065
     Dates: start: 20180716, end: 20180716
  5. DOXORUBICIN                        /00330902/ [Concomitant]
     Active Substance: DOXORUBICIN
     Dosage: 91 MG
     Route: 065
     Dates: start: 20180716, end: 20180716
  6. CYCLOPHOSPHAMIDE. [Concomitant]
     Active Substance: CYCLOPHOSPHAMIDE
     Dosage: 780 MG
     Route: 065
     Dates: start: 20180806, end: 20180806
  7. DOCETAXEL. [Concomitant]
     Active Substance: DOCETAXEL
     Indication: BREAST CANCER
     Dosage: 113 MG
     Dates: start: 20180917, end: 20180917
  8. PEGFILGRASTIM [Suspect]
     Active Substance: PEGFILGRASTIM
     Dosage: 6 MG, QD
     Route: 058
     Dates: start: 20180807, end: 20180807
  9. PEGFILGRASTIM [Suspect]
     Active Substance: PEGFILGRASTIM
     Dosage: 6 MG, QD
     Route: 058
     Dates: start: 20180918, end: 20180918
  10. CYCLOPHOSPHAMIDE. [Concomitant]
     Active Substance: CYCLOPHOSPHAMIDE
     Dosage: 780 MG
     Route: 065
     Dates: start: 20180827, end: 20180827
  11. DOXORUBICIN                        /00330902/ [Concomitant]
     Active Substance: DOXORUBICIN
     Dosage: 78 MG
     Route: 065
     Dates: start: 20180806, end: 20180806
  12. PEGFILGRASTIM [Suspect]
     Active Substance: PEGFILGRASTIM
     Indication: BREAST CANCER
     Dosage: 6 MG, QD
     Route: 058
     Dates: start: 20180717, end: 20180717
  13. PEGFILGRASTIM [Suspect]
     Active Substance: PEGFILGRASTIM
     Dosage: 6 MG, QD
     Route: 058
     Dates: start: 20180828, end: 20180828

REACTIONS (1)
  - Upper respiratory tract infection [Recovered/Resolved]

NARRATIVE: CASE EVENT DATE: 20180925
